FAERS Safety Report 9292466 (Version 1)
Quarter: 2013Q2

REPORT INFORMATION
  Report Type: Spontaneous
  Country: BR (occurrence: BR)
  Receive Date: 20130516
  Receipt Date: 20130516
  Transmission Date: 20140414
  Serious: Yes (Hospitalization)
  Sender: FDA-Public Use
  Company Number: BR-PFIZER INC-2013148036

PATIENT
  Age: 56 Year
  Sex: Male

DRUGS (9)
  1. FRONTAL [Suspect]
     Indication: ANXIETY
     Dosage: 0.5 MG (ONE TABLET) EVERY 12 HOURS
     Route: 048
  2. BACTRIM [Concomitant]
     Indication: ANTIBIOTIC THERAPY
     Dosage: ONE TABLET (UNSPECIFIED DOSE) DAILY
  3. CELLCEPT [Concomitant]
     Indication: IMMUNOSUPPRESSANT DRUG THERAPY
     Dosage: ^1^ (UNSPECIFIED FORMULATIONS, STRENGTH 500MG) EVERY 12 HOURS
  4. CLORANA [Concomitant]
     Dosage: ONE TABLET (25MG)  ON THURSDAY AND ON FRIDAY
  5. COLCHICINE [Concomitant]
     Dosage: ONE TABLET (0.5MG) AT 07:00H, 1X/DAY
  6. LOSEC [Concomitant]
     Indication: GASTRIC DISORDER
     Dosage: ^1^ (UNSPECIFIED FORMULATION, STRENGTH 40MG) AT 08:00H
  7. PIDOMAG [Concomitant]
     Indication: MINERAL SUPPLEMENTATION
     Dosage: 2 FLACONS OF 150MG, UNSPECIFIED FREQUENCY
  8. PROCORALAN [Concomitant]
     Dosage: UNSPECIFIED DOSE, EVERY 12 HOURS
  9. CONCOR [Concomitant]
     Dosage: ONE AND HALF TABLET OF 5MG (7.5MG) AT 08:00H

REACTIONS (1)
  - Cardiac disorder [Unknown]
